FAERS Safety Report 5515752-7 (Version None)
Quarter: 2007Q4

REPORT INFORMATION
  Report Type: 
  Country: None (occurrence: None)
  Receive Date: 20071114
  Receipt Date: 20071106
  Transmission Date: 20080405
  Serious: Yes (Other)
  Sender: FDA-Public Use
  Company Number: PHEH2007US11568

PATIENT
  Sex: Male

DRUGS (1)
  1. ZELNORM [Suspect]

REACTIONS (8)
  - ABDOMINAL PAIN UPPER [None]
  - BILE DUCT STONE [None]
  - CHOLECYSTECTOMY [None]
  - CHOLELITHIASIS [None]
  - COLITIS [None]
  - GASTRIC ULCER [None]
  - UMBILICAL HERNIA [None]
  - UMBILICAL HERNIA REPAIR [None]
